FAERS Safety Report 5828236-3 (Version None)
Quarter: 2008Q3

REPORT INFORMATION
  Report Type: 
  Country: None (occurrence: None)
  Receive Date: 20080731
  Receipt Date: 20080723
  Transmission Date: 20090109
  Serious: Yes (Congenital Anomaly, Other)
  Sender: FDA-Public Use
  Company Number: GB-AVENTIS-200813592EU

PATIENT
  Age: 37 Year
  Sex: Female
  Weight: 61 kg

DRUGS (3)
  1. ENOXAPARIN SODIUM [Suspect]
     Indication: PROPHYLAXIS OF ABORTION
     Route: 058
     Dates: start: 20080425, end: 20080604
  2. ASPIRIN [Concomitant]
     Indication: PROPHYLAXIS OF ABORTION
     Route: 048
     Dates: start: 20080425, end: 20080604
  3. PREGNACARE [Concomitant]
     Dosage: DOSE: UNK
     Route: 048
     Dates: start: 20080425, end: 20080604

REACTIONS (6)
  - ABORTION SPONTANEOUS [None]
  - DRUG EXPOSURE DURING PREGNANCY [None]
  - MATERNAL DRUGS AFFECTING FOETUS [None]
  - POOR QUALITY DRUG ADMINISTERED [None]
  - SPINA BIFIDA [None]
  - THERAPEUTIC PRODUCT CONTAMINATION [None]
